FAERS Safety Report 9709947 (Version 2)
Quarter: 2013Q4

REPORT INFORMATION
  Report Type: Spontaneous
  Country: FR (occurrence: FR)
  Receive Date: 20131126
  Receipt Date: 20131126
  Transmission Date: 20140711
  Serious: Yes (Life-Threatening)
  Sender: FDA-Public Use
  Company Number: FR-BEH-2012033915

PATIENT
  Age: 86 Year
  Sex: Male

DRUGS (8)
  1. CONFIDEX [Suspect]
     Indication: FACTOR X DEFICIENCY
     Dosage: 5 VIALS
     Dates: start: 20121103
  2. ICAZ LP [Concomitant]
     Dosage: FREQUENCY: 1/D (DAY)
  3. DAFALGAN [Concomitant]
  4. VOLTAREN [Concomitant]
  5. OMEPRAZOL [Concomitant]
  6. KANOKAD [Concomitant]
     Dates: start: 20121102
  7. KANOKAD [Concomitant]
     Dates: start: 20121102
  8. PACKED RED BLOOD CELLS [Concomitant]
     Dosage: 2 LOTS
     Dates: start: 20121102

REACTIONS (8)
  - Anaphylactic shock [Recovered/Resolved]
  - Dyspnoea [Recovered/Resolved]
  - Tachypnoea [Recovered/Resolved]
  - Pruritus [Recovered/Resolved]
  - Urticaria [Recovered/Resolved]
  - Skin lesion [Recovered/Resolved]
  - Oxygen saturation [Recovered/Resolved]
  - Hypotension [Recovered/Resolved]
